FAERS Safety Report 7274368-5 (Version None)
Quarter: 2011Q1

REPORT INFORMATION
  Report Type: 
  Country: None (occurrence: None)
  Receive Date: 20110201
  Receipt Date: 20110201
  Transmission Date: 20110831
  Serious: Yes (Life-Threatening)
  Sender: FDA-Public Use
  Company Number: None

PATIENT
  Sex: Female
  Weight: 127.0072 kg

DRUGS (2)
  1. ABILIFY [Suspect]
     Indication: MAJOR DEPRESSION
     Dosage: 10MG ONCE DAILY PO
     Route: 048
     Dates: start: 20090901, end: 20091101
  2. ABILIFY [Suspect]
     Indication: ANXIETY DISORDER
     Dosage: 10MG ONCE DAILY PO
     Route: 048
     Dates: start: 20090901, end: 20091101

REACTIONS (7)
  - SUICIDAL IDEATION [None]
  - AGORAPHOBIA [None]
  - NIGHTMARE [None]
  - HEADACHE [None]
  - CRYING [None]
  - HYPERSOMNIA [None]
  - DEREALISATION [None]
